FAERS Safety Report 21937827 (Version 2)
Quarter: 2023Q1

REPORT INFORMATION
  Report Type: Spontaneous
  Country: LT (occurrence: LT)
  Receive Date: 20230201
  Receipt Date: 20230209
  Transmission Date: 20230418
  Serious: No
  Sender: FDA-Public Use
  Company Number: LT-SA-2023SA021993

PATIENT
  Age: 59 Year
  Sex: Male

DRUGS (7)
  1. DOCETAXEL [Suspect]
     Active Substance: DOCETAXEL
     Indication: Gastric cancer stage III
     Dosage: UNK, CYCLIC
     Route: 065
     Dates: start: 20220111, end: 20220127
  2. DOCETAXEL [Suspect]
     Active Substance: DOCETAXEL
     Dosage: DOSE OF DOCETAXEL WAS REDUCED BY 25 PERCENT
     Route: 065
     Dates: start: 20220510, end: 2022
  3. DOCETAXEL [Suspect]
     Active Substance: DOCETAXEL
     Dosage: AFTER SURGERY 6 CYCLES (8 PERIOPERATIVE CYCLES OF CHEMOTHERAPY IN TOTAL
     Route: 065
     Dates: start: 20220510
  4. FLUOROURACIL [Suspect]
     Active Substance: FLUOROURACIL
     Indication: Gastric cancer stage III
     Dosage: UNK, CYCLIC
     Route: 065
     Dates: start: 20220111, end: 20220127
  5. LEVOLEUCOVORIN CALCIUM [Suspect]
     Active Substance: LEVOLEUCOVORIN CALCIUM
     Indication: Gastric cancer stage III
     Dosage: UNK, CYCLIC
     Route: 065
     Dates: start: 20220111, end: 20220127
  6. OXALIPLATIN [Suspect]
     Active Substance: OXALIPLATIN
     Indication: Gastric cancer stage III
     Dosage: UNK, CYCLIC
     Route: 065
     Dates: start: 20220111, end: 20220127
  7. OXALIPLATIN [Suspect]
     Active Substance: OXALIPLATIN
     Dosage: AFTER SURGERY 6 CYCLES (8 PERIOPERATIVE CYCLES OF CHEMOTHERAPY IN TOTAL
     Route: 065
     Dates: start: 20220510

REACTIONS (8)
  - Gait disturbance [Recovered/Resolved]
  - Erythema [Recovered/Resolved]
  - Blister [Recovered/Resolved]
  - Skin exfoliation [Recovered/Resolved]
  - Palmar-plantar erythrodysaesthesia syndrome [Recovered/Resolved]
  - Rash [Recovered/Resolved]
  - Onychoclasis [Recovered/Resolved]
  - Pain of skin [Recovered/Resolved]
